FAERS Safety Report 9263602 (Version 1)
Quarter: 2013Q2

REPORT INFORMATION
  Report Type: Spontaneous
  Country: FR (occurrence: FR)
  Receive Date: 20130430
  Receipt Date: 20130430
  Transmission Date: 20140414
  Serious: Yes (Death, Other)
  Sender: FDA-Public Use
  Company Number: FR-009507513-1304FRA013269

PATIENT
  Age: 39 Year
  Sex: Female

DRUGS (8)
  1. CANCIDAS [Suspect]
     Indication: GASTROINTESTINAL CANDIDIASIS
     Dosage: UNK
     Dates: start: 20130328
  2. NOXAFIL [Suspect]
     Dosage: UNK
     Dates: start: 20130314, end: 20130328
  3. SOLIRIS [Suspect]
  4. CELLCEPT [Suspect]
     Indication: GRAFT VERSUS HOST DISEASE
     Dosage: UNK
     Dates: start: 20130320
  5. CYMEVAN IV [Suspect]
     Indication: CYTOMEGALOVIRUS INFECTION
     Dosage: UNK
  6. INEXIUM [Suspect]
     Indication: GASTROOESOPHAGEAL REFLUX DISEASE
     Dosage: UNK
     Route: 048
     Dates: start: 20130318, end: 20130401
  7. TAZOCILLINE [Suspect]
     Indication: CYSTITIS ESCHERICHIA
     Dosage: UNK
     Route: 042
     Dates: start: 20130212, end: 20130403
  8. FOSCAVIR [Suspect]
     Indication: CYTOMEGALOVIRUS INFECTION
     Dosage: UNK
     Dates: start: 20130313, end: 20130329

REACTIONS (1)
  - Bone marrow failure [Fatal]
